FAERS Safety Report 25046768 (Version 1)
Quarter: 2025Q1

REPORT INFORMATION
  Report Type: Spontaneous
  Country: US (occurrence: US)
  Receive Date: 20250306
  Receipt Date: 20250306
  Transmission Date: 20250409
  Serious: Yes (Hospitalization, Other)
  Sender: VERTEX
  Company Number: US-VERTEX PHARMACEUTICALS-2024-020160

PATIENT
  Sex: Male

DRUGS (1)
  1. TRIKAFTA [Suspect]
     Active Substance: ELEXACAFTOR\IVACAFTOR\TEZACAFTOR
     Indication: Cystic fibrosis
     Dosage: TWO ORANGE TABLETS IN THE MORNING AND ONE LIGHT BLUE TABLET IN THE EVENING
     Route: 048
     Dates: start: 20191224

REACTIONS (2)
  - Liver transplant [Recovering/Resolving]
  - Cystic fibrosis [Unknown]
